FAERS Safety Report 18663691 (Version 1)
Quarter: 2020Q4

REPORT INFORMATION
  Report Type: Spontaneous
  Country: DK (occurrence: DK)
  Receive Date: 20201224
  Receipt Date: 20201224
  Transmission Date: 20210114
  Serious: Yes (Other)
  Sender: FDA-Public Use
  Company Number: DK-MYLANLABS-2020M1103736

PATIENT
  Age: 16 Year
  Sex: Female

DRUGS (2)
  1. TRIAMCINOLONE [Suspect]
     Active Substance: TRIAMCINOLONE
     Indication: TENDONITIS
     Dosage: 0.5 MILLILITER (STRENGTH: 20 MG/ML)
     Dates: start: 20190416, end: 20190416
  2. XYLOCAIN                           /00033401/ [Concomitant]
     Active Substance: LIDOCAINE
     Indication: TENDONITIS
     Dosage: 0.5 MILLILITER (STRENGTH: UNKNOWN)
     Dates: start: 20190416, end: 20190416

REACTIONS (2)
  - Injection site necrosis [Not Recovered/Not Resolved]
  - Skin atrophy [Not Recovered/Not Resolved]

NARRATIVE: CASE EVENT DATE: 2019
